FAERS Safety Report 4723180-7 (Version None)
Quarter: 2005Q3

REPORT INFORMATION
  Report Type: 
  Country: None (occurrence: None)
  Receive Date: 20050719
  Receipt Date: 20040826
  Transmission Date: 20060218
  Serious: Yes (Other)
  Sender: FDA-Public Use
  Company Number: 2004230671US

PATIENT
  Age: 61 Year
  Sex: Female
  Weight: 81.2 kg

DRUGS (9)
  1. CELEBREX [Suspect]
     Dosage: 200 MG, QD, ORAL
     Route: 048
     Dates: start: 20040801
  2. EVISTA [Concomitant]
  3. CALTRATE + D [Concomitant]
  4. ALL OTHER NON-THERAPEUTIC PRODUCTS [Concomitant]
  5. CALTRATE [Concomitant]
  6. VITAMIN E [Concomitant]
  7. OMEGA-3 [Concomitant]
  8. MULTIVITAMINS (ERGOCALCIFEROL, RETINOL, PANTHENOL) [Concomitant]
  9. POTASSIUM [Concomitant]

REACTIONS (4)
  - CANDIDIASIS [None]
  - COLITIS [None]
  - DEPRESSION [None]
  - DRUG INEFFECTIVE [None]
